FAERS Safety Report 9132371 (Version 1)
Quarter: 2013Q1

REPORT INFORMATION
  Report Type: Spontaneous
  Country: IT (occurrence: IT)
  Receive Date: 20130301
  Receipt Date: 20130301
  Transmission Date: 20140127
  Serious: Yes (Life-Threatening)
  Sender: FDA-Public Use
  Company Number: IT-ROCHE-1196173

PATIENT
  Age: 68 Year
  Sex: Female

DRUGS (1)
  1. HERCEPTIN [Suspect]
     Indication: BREAST CANCER
     Route: 042
     Dates: start: 20130222, end: 20130222

REACTIONS (2)
  - Acute respiratory failure [Recovering/Resolving]
  - Oxygen saturation decreased [Recovering/Resolving]
